FAERS Safety Report 6925996-5 (Version None)
Quarter: 2010Q3

REPORT INFORMATION
  Report Type: 
  Country: None (occurrence: None)
  Receive Date: 20100816
  Receipt Date: 20100804
  Transmission Date: 20110219
  Serious: Yes (Death)
  Sender: FDA-Public Use
  Company Number: JP-PFIZER INC-2010097580

PATIENT
  Age: 45 Year
  Sex: Male

DRUGS (1)
  1. GABAPEN [Suspect]
     Indication: EPILEPSY
     Dosage: 1500 MG, DAILY
     Route: 048

REACTIONS (1)
  - ROAD TRAFFIC ACCIDENT [None]
